FAERS Safety Report 20674299 (Version 3)
Quarter: 2022Q2

REPORT INFORMATION
  Report Type: Spontaneous
  Country: CN (occurrence: None)
  Receive Date: 20220405
  Receipt Date: 20220506
  Transmission Date: 20220721
  Serious: Yes (Hospitalization)
  Sender: FDA-Public Use
  Company Number: 2022A126998

PATIENT
  Age: 54 Year
  Sex: Male
  Weight: 61 kg

DRUGS (2)
  1. IMFINZI [Suspect]
     Active Substance: DURVALUMAB
     Indication: Non-small cell lung cancer stage III
     Dosage: 1000MG/PERIOD
     Route: 042
     Dates: start: 20211025, end: 20211118
  2. IMFINZI [Suspect]
     Active Substance: DURVALUMAB
     Indication: Non-small cell lung cancer stage III
     Dosage: TWO VIALS OF 500 MG EACH TIME, 1000 MG TOTAL
     Route: 042

REACTIONS (2)
  - Discomfort [Recovered/Resolved]
  - Inappropriate schedule of product administration [Unknown]
